FAERS Safety Report 23074246 (Version 1)
Quarter: 2023Q4

REPORT INFORMATION
  Report Type: Spontaneous
  Country: FR (occurrence: FR)
  Receive Date: 20231017
  Receipt Date: 20231017
  Transmission Date: 20240110
  Serious: Yes (Hospitalization)
  Sender: FDA-Public Use
  Company Number: None

PATIENT
  Age: 77 Year
  Sex: Female

DRUGS (2)
  1. DOXYCYCLINE [Suspect]
     Active Substance: DOXYCYCLINE
     Indication: Q fever
     Dosage: 200 MILLIGRAM
     Route: 048
     Dates: start: 20230830
  2. VIMPAT [Suspect]
     Active Substance: LACOSAMIDE
     Indication: Encephalitis
     Dosage: UNK
     Route: 048
     Dates: start: 20230823, end: 20230904

REACTIONS (1)
  - Cholestasis [Not Recovered/Not Resolved]

NARRATIVE: CASE EVENT DATE: 20230914
